FAERS Safety Report 7519579-6 (Version None)
Quarter: 2011Q2

REPORT INFORMATION
  Report Type: 
  Country: None (occurrence: None)
  Receive Date: 20110602
  Receipt Date: 20110518
  Transmission Date: 20111010
  Serious: Yes (Hospitalization)
  Sender: FDA-Public Use
  Company Number: A0788539A

PATIENT
  Age: 65 Year
  Sex: Female
  Weight: 60.9 kg

DRUGS (8)
  1. BETAPACE [Concomitant]
  2. ENALAPRIL MALEATE AND HYDROCHLOROTHIAZIDE [Concomitant]
  3. DIGOXIN [Concomitant]
  4. LIPITOR [Concomitant]
  5. ASPIRIN [Concomitant]
  6. TOPROL-XL [Concomitant]
  7. AVANDIA [Suspect]
     Indication: DIABETES MELLITUS
     Route: 048
     Dates: start: 20020101, end: 20070101
  8. AVANDAMET [Suspect]
     Indication: DIABETES MELLITUS
     Route: 048

REACTIONS (6)
  - MYOCARDIAL INFARCTION [None]
  - RENAL FAILURE [None]
  - ACUTE CORONARY SYNDROME [None]
  - CARDIAC FAILURE CONGESTIVE [None]
  - CARDIOMYOPATHY [None]
  - CORONARY ARTERY DISEASE [None]
